FAERS Safety Report 4989360-0 (Version None)
Quarter: 2006Q2

REPORT INFORMATION
  Report Type: 
  Country: None (occurrence: None)
  Receive Date: 20060426
  Receipt Date: 20060413
  Transmission Date: 20061013
  Serious: Yes (Hospitalization)
  Sender: FDA-Public Use
  Company Number: 2006SP001674

PATIENT
  Age: 84 Year
  Sex: Male
  Weight: 76.2043 kg

DRUGS (2)
  1. XOPENEX [Suspect]
     Indication: CHRONIC OBSTRUCTIVE PULMONARY DISEASE
     Dosage: 1.25 MG; TID; INHALATION
     Route: 055
     Dates: start: 20040101
  2. TERAZOIN [Concomitant]

REACTIONS (5)
  - CONTUSION [None]
  - DIZZINESS [None]
  - HAEMOPTYSIS [None]
  - PULMONARY HAEMORRHAGE [None]
  - VASCULAR RUPTURE [None]
